FAERS Safety Report 22175406 (Version 2)
Quarter: 2023Q2

REPORT INFORMATION
  Report Type: Spontaneous
  Country: FR (occurrence: FR)
  Receive Date: 20230405
  Receipt Date: 20230612
  Transmission Date: 20230721
  Serious: Yes (Hospitalization, Disabling, Other)
  Sender: FDA-Public Use
  Company Number: FR-SA-SAC20210713000595

PATIENT
  Age: 56 Year
  Sex: Male
  Weight: 84 kg

DRUGS (40)
  1. PREDNISONE [Suspect]
     Active Substance: PREDNISONE
     Indication: Product used for unknown indication
     Dosage: 10 MILLIGRAM, ONCE A DAY
     Route: 065
  2. PREDNISONE [Suspect]
     Active Substance: PREDNISONE
     Dosage: 7.5 MILLIGRAM, ONCE A DAY
     Route: 065
  3. PREDNISONE [Suspect]
     Active Substance: PREDNISONE
     Dosage: 5 MILLIGRAM, ONCE A DAY
     Route: 065
  4. PREDNISONE [Suspect]
     Active Substance: PREDNISONE
     Dosage: 17.5 MILLIGRAM, ONCE A DAY
     Route: 065
  5. PREDNISONE [Suspect]
     Active Substance: PREDNISONE
     Dosage: 40 MILLIGRAM, ONCE A DAY
     Route: 065
     Dates: start: 20190411
  6. METHOTREXATE [Suspect]
     Active Substance: METHOTREXATE
     Indication: Product used for unknown indication
     Dosage: 15 MILLIGRAM, EVERY WEEK
     Route: 058
  7. HYDROCORTISONE [Suspect]
     Active Substance: HYDROCORTISONE
     Indication: Adrenal insufficiency
     Dosage: 15 MG IN THE MORNING, 5 MG AT NOON
     Route: 065
  8. CYMBALTA [Concomitant]
     Active Substance: DULOXETINE HYDROCHLORIDE
     Indication: Small fibre neuropathy
     Dosage: 60 MILLIGRAM, ONCE A DAY
     Route: 065
  9. CYMBALTA [Concomitant]
     Active Substance: DULOXETINE HYDROCHLORIDE
     Indication: Myalgia
     Dosage: 60 MILLIGRAM (1 TAB MORNING AND EVENING)
     Route: 065
  10. REVAXIS [Concomitant]
     Active Substance: DIPHTHERIA AND TETANUS TOXOIDS AND POLIOVIRUS VACCINE ANTIGENS
     Indication: Immunisation
     Dosage: UNK
     Route: 065
     Dates: start: 20140421
  11. REVAXIS [Concomitant]
     Active Substance: DIPHTHERIA AND TETANUS TOXOIDS AND POLIOVIRUS VACCINE ANTIGENS
     Indication: Tetanus immunisation
     Dosage: UNK
     Route: 065
     Dates: start: 2002
  12. REVAXIS [Concomitant]
     Active Substance: DIPHTHERIA AND TETANUS TOXOIDS AND POLIOVIRUS VACCINE ANTIGENS
     Indication: Immunisation
  13. OMEPRAZOLE [Concomitant]
     Active Substance: OMEPRAZOLE
     Indication: Product used for unknown indication
     Dosage: 20 MILLIGRAM, AS NECESSARY(1 TAB IN THE EVENING, AS NECESSARY)
     Route: 065
  14. ELIQUIS [Concomitant]
     Active Substance: APIXABAN
     Indication: Pulmonary embolism
     Dosage: 5 MILLIGRAM (MORNING AND EVENING FOR 6 MONTHS)
     Route: 065
  15. ELIQUIS [Concomitant]
     Active Substance: APIXABAN
     Dosage: 10 MILLIGRAM (MORNING AND EVENING FOR 7 DAYS)
     Route: 065
  16. ACETAMINOPHEN [Concomitant]
     Active Substance: ACETAMINOPHEN
     Indication: Product used for unknown indication
     Dosage: UNK (1 TO 3 PER DAY IF NEEDED)
     Route: 065
  17. APIXABAN [Concomitant]
     Active Substance: APIXABAN
     Indication: Product used for unknown indication
     Dosage: UNK
     Route: 065
  18. CHOLECALCIFEROL [Concomitant]
     Active Substance: CHOLECALCIFEROL
     Indication: Product used for unknown indication
     Dosage: UNK
     Route: 065
  19. KEPPRA [Concomitant]
     Active Substance: LEVETIRACETAM
     Indication: Generalised tonic-clonic seizure
     Dosage: UNK
     Route: 065
     Dates: start: 1994
  20. KEPPRA [Concomitant]
     Active Substance: LEVETIRACETAM
     Dosage: 500 MILLIGRAM(1 IN THE MORNING AND 1 IN THE EVENING)
     Route: 065
     Dates: start: 2002
  21. AGOMELATINE [Concomitant]
     Active Substance: AGOMELATINE
     Indication: Product used for unknown indication
     Dosage: UNK
     Route: 065
  22. Lamaline [Concomitant]
     Indication: Pain
     Dosage: UNK (2 CAPSULES 3 TIMES A DAY MAX IF PAINFUL CRISIS)
     Route: 065
  23. PRAMIPEXOLE [Concomitant]
     Active Substance: PRAMIPEXOLE
     Indication: Product used for unknown indication
     Dosage: UNK
     Route: 065
  24. LEVOCARNITINE [Concomitant]
     Active Substance: LEVOCARNITINE
     Indication: Product used for unknown indication
     Dosage: UNK
     Route: 065
  25. PRAMIPEXOLE [Concomitant]
     Active Substance: PRAMIPEXOLE
     Indication: Restless legs syndrome
     Dosage: 0.18 MILLIGRAM, ONCE A DAY(1 TABLET IN THE EVENING)
     Route: 065
  26. PREDNISONE [Concomitant]
     Active Substance: PREDNISONE
     Indication: Product used for unknown indication
     Dosage: 40 MILLIGRAM, ONCE A DAY
     Route: 065
  27. OMEPRAZOLE [Concomitant]
     Active Substance: OMEPRAZOLE
     Indication: Product used for unknown indication
     Dosage: UNK
     Route: 065
  28. FLUDROCORTISONE [Concomitant]
     Active Substance: FLUDROCORTISONE
     Indication: Product used for unknown indication
     Dosage: UNK
     Route: 065
  29. VALDOXAN [Concomitant]
     Active Substance: AGOMELATINE
     Indication: Product used for unknown indication
     Dosage: UNK (25 (1 IN THE EVENING))
     Route: 065
  30. DULOXETINE [Concomitant]
     Active Substance: DULOXETINE
     Indication: Product used for unknown indication
     Dosage: UNK
     Route: 065
  31. LEVETIRACETAM [Concomitant]
     Active Substance: LEVETIRACETAM
     Indication: Product used for unknown indication
     Dosage: UNK
     Route: 065
  32. CHOLECALCIFEROL [Concomitant]
     Active Substance: CHOLECALCIFEROL
     Indication: Product used for unknown indication
     Dosage: UNK (1 VIAL TO DRINK PER MONTH FOR 3 MONTHS)
     Route: 065
  33. Lamaline [Concomitant]
     Indication: Product used for unknown indication
     Dosage: UNK
     Route: 065
  34. FLUDROCORTISONE ACETATE [Concomitant]
     Active Substance: FLUDROCORTISONE ACETATE
     Indication: Asthenia
     Dosage: 50 MICROGRAM, ONCE A DAY
     Route: 065
  35. ALPRAZOLAM [Concomitant]
     Active Substance: ALPRAZOLAM
     Indication: Generalised tonic-clonic seizure
     Dosage: UNK(1/2 - 1/2 - 1/2 AND 2 IN THE EVENING).
     Route: 065
  36. ALPRAZOLAM [Concomitant]
     Active Substance: ALPRAZOLAM
     Dosage: UNK 25 (1 MORNING, 1 NOON AND 2 NIGHT).
     Route: 065
  37. ALPRAZOLAM [Concomitant]
     Active Substance: ALPRAZOLAM
     Dosage: UNK 0.25 (1 MORNING, 1 NOON AND 2 EVENING)
     Route: 065
  38. ALPRAZOLAM [Concomitant]
     Active Substance: ALPRAZOLAM
     Dosage: UNK, Q8H
     Route: 065
  39. ALPRAZOLAM [Concomitant]
     Active Substance: ALPRAZOLAM
     Dosage: UNK (1-1-1)
     Route: 065
  40. LEVOCARNITINE [Concomitant]
     Active Substance: LEVOCARNITINE
     Indication: Fatigue
     Route: 065

REACTIONS (46)
  - Burnout syndrome [Unknown]
  - Fibromyalgia [Unknown]
  - Arthralgia [Unknown]
  - Lymphocytic infiltration [Unknown]
  - Pyrexia [Unknown]
  - Memory impairment [Unknown]
  - Restless legs syndrome [Unknown]
  - Migraine [Unknown]
  - Asthenia [Unknown]
  - Fatigue [Recovering/Resolving]
  - Dry eye [Unknown]
  - Back pain [Unknown]
  - Burning sensation [Unknown]
  - Dysglobulinaemia [Unknown]
  - Photophobia [Unknown]
  - Influenza like illness [Unknown]
  - Sleep disorder [Unknown]
  - Myofascitis [Unknown]
  - Small fibre neuropathy [Unknown]
  - Chest pain [Recovered/Resolved]
  - Cough [Unknown]
  - Weight increased [Unknown]
  - Chronic fatigue syndrome [Unknown]
  - Insomnia [Recovering/Resolving]
  - Dyskinesia [Unknown]
  - Loss of personal independence in daily activities [Recovering/Resolving]
  - Paraesthesia [Unknown]
  - Myalgia [Unknown]
  - Pain in extremity [Recovering/Resolving]
  - Adrenal insufficiency [Unknown]
  - Neuralgia [Unknown]
  - Hypoaesthesia [Unknown]
  - Musculoskeletal stiffness [Unknown]
  - Dry mouth [Unknown]
  - Headache [Unknown]
  - Psychomotor hyperactivity [Unknown]
  - Vomiting [Unknown]
  - Sensory loss [Unknown]
  - Steroid dependence [Unknown]
  - Personality change [Unknown]
  - Mental disorder [Unknown]
  - Ocular discomfort [Unknown]
  - Frustration tolerance decreased [Unknown]
  - Myositis [Unknown]
  - Poor quality sleep [Unknown]
  - Disturbance in attention [Unknown]
